FAERS Safety Report 4823095-X (Version None)
Quarter: 2005Q4

REPORT INFORMATION
  Report Type: 
  Country: None (occurrence: None)
  Receive Date: 20051108
  Receipt Date: 20050930
  Transmission Date: 20060501
  Serious: Yes (Life-Threatening)
  Sender: FDA-Public Use
  Company Number: JP-BOEHRINGER INGELHEIM PHARMACEUTICALS, INC.-2005-BP-17780YA

PATIENT
  Sex: Male

DRUGS (9)
  1. HARNAL [Suspect]
     Indication: BENIGN PROSTATIC HYPERPLASIA
     Route: 048
     Dates: start: 20050823, end: 20050912
  2. WARFARIN [Suspect]
     Indication: CEREBRAL INFARCTION
     Route: 048
     Dates: start: 20030601, end: 20050913
  3. ALEVIATIN [Suspect]
     Indication: EPILEPSY
     Route: 048
     Dates: start: 20050713
  4. DILTIAZEM HYDROCHLORIDE [Concomitant]
     Indication: ATRIAL FIBRILLATION
     Route: 048
     Dates: start: 20030601, end: 20051003
  5. TERAZOSIN HYDROCHLORIDE [Concomitant]
     Indication: HYPERTENSION
     Dosage: 1 MG BID
     Route: 048
     Dates: start: 20030601
  6. RILMAZAFONE [Concomitant]
     Indication: INSOMNIA
     Route: 048
     Dates: start: 20030601, end: 20050912
  7. RABEPRAZOLE SODIUM [Concomitant]
     Indication: REFLUX OESOPHAGITIS
     Route: 048
     Dates: start: 20041019
  8. CARBAMAZEPINE [Concomitant]
     Indication: EPILEPSY
     Dosage: 100MG BID
     Route: 048
     Dates: start: 20040212, end: 20050712
  9. PROPIVERINE HYDROCHLORIDE [Concomitant]
     Indication: NEUROGENIC BLADDER
     Route: 048
     Dates: start: 20050216, end: 20050822

REACTIONS (6)
  - ACTIVATED PARTIAL THROMBOPLASTIN TIME PROLONGED [None]
  - DRUG INTERACTION [None]
  - HAEMORRHAGE SUBCUTANEOUS [None]
  - HEART RATE INCREASED [None]
  - INTERNATIONAL NORMALISED RATIO INCREASED [None]
  - MALAISE [None]
